FAERS Safety Report 8475677-4 (Version None)
Quarter: 2012Q2

REPORT INFORMATION
  Report Type: 
  Country: None (occurrence: None)
  Receive Date: 20120628
  Receipt Date: 20100806
  Transmission Date: 20120825
  Serious: Yes (Hospitalization)
  Sender: FDA-Public Use
  Company Number: US-GLAXOSMITHKLINE-A0875832A

PATIENT
  Age: 68 Year
  Sex: Female
  Weight: 130.9 kg

DRUGS (6)
  1. VYTORIN [Concomitant]
  2. GLIPIZIDE [Concomitant]
  3. AVANDIA [Suspect]
     Indication: DIABETES MELLITUS
     Dosage: 4MG PER DAY
     Route: 048
  4. DILTIAZEM HYDROCHOLORIDE [Concomitant]
  5. ATENOLOL [Concomitant]
  6. INSULIN [Concomitant]

REACTIONS (3)
  - SICK SINUS SYNDROME [None]
  - CARDIAC DISORDER [None]
  - CARDIAC FAILURE CONGESTIVE [None]
